FAERS Safety Report 5725457-5 (Version None)
Quarter: 2008Q2

REPORT INFORMATION
  Report Type: 
  Country: None (occurrence: None)
  Receive Date: 20080501
  Receipt Date: 20080423
  Transmission Date: 20081010
  Serious: Yes (Life-Threatening)
  Sender: FDA-Public Use
  Company Number: FR-PFIZER INC-2008035795

PATIENT
  Sex: Male

DRUGS (4)
  1. ATORVASTATIN CALCIUM [Suspect]
     Route: 048
  2. CORDARONE [Suspect]
     Indication: VENTRICULAR ARRHYTHMIA
     Route: 048
  3. CORGARD [Suspect]
     Indication: VENTRICULAR ARRHYTHMIA
     Route: 048
     Dates: start: 20080125, end: 20080209
  4. PREVISCAN [Suspect]

REACTIONS (6)
  - BRADYCARDIA [None]
  - CARDIAC FAILURE [None]
  - EPILEPSY [None]
  - HEPATOCELLULAR INJURY [None]
  - HYPERKALAEMIA [None]
  - RENAL FAILURE [None]
